FAERS Safety Report 7413322-7 (Version None)
Quarter: 2011Q2

REPORT INFORMATION
  Report Type: 
  Country: None (occurrence: None)
  Receive Date: 20110413
  Receipt Date: 20100929
  Transmission Date: 20111010
  Serious: Yes (Hospitalization)
  Sender: FDA-Public Use
  Company Number: US-ASTRAZENECA-2010SE38072

PATIENT
  Age: 58 Year
  Sex: Male
  Weight: 86.2 kg

DRUGS (13)
  1. OMEPRAZOLE [Concomitant]
     Indication: GASTROOESOPHAGEAL REFLUX DISEASE
     Route: 048
     Dates: start: 20020101
  2. CELECOXIB [Suspect]
     Dosage: NAPROXEN 500 MG , TWO TIMES A DAY
     Route: 048
     Dates: start: 20091029, end: 20091115
  3. GLIPIZIDE [Concomitant]
     Indication: DIABETES MELLITUS
     Route: 048
     Dates: start: 20000101
  4. ADVAIR HFA [Concomitant]
     Indication: ASTHMA
     Route: 055
     Dates: start: 20060101
  5. CELECOXIB [Suspect]
     Indication: OSTEOARTHRITIS
     Dosage: TWO TIMES DAY
     Dates: start: 20091116, end: 20100624
  6. SIMVASTATIN [Concomitant]
     Indication: DYSLIPIDAEMIA
     Route: 048
     Dates: start: 19960101
  7. ACETYLSALICYLIC ACID SRT [Concomitant]
     Indication: CARDIOVASCULAR EVENT PROPHYLAXIS
     Route: 048
     Dates: start: 20000101
  8. ATENOLOL [Suspect]
     Indication: HYPERTENSION
     Route: 048
     Dates: start: 20100625, end: 20100628
  9. PROAIR HFA [Concomitant]
     Indication: ASTHMA
     Route: 055
     Dates: start: 20050101
  10. LISINOPRIL AND HYDROCHLOROTHIAZIDE [Concomitant]
     Indication: HYPERTENSION
     Dosage: LISINOPRIL 20MG / HCT 25 MG, ONCE DAILY
     Route: 048
     Dates: start: 20100412
  11. AMLODIPINE [Concomitant]
     Indication: HYPERTENSION
     Dates: start: 20070101
  12. METFORMIN [Concomitant]
     Indication: DIABETES MELLITUS
     Route: 048
     Dates: start: 20000101, end: 20100702
  13. LORATADINE [Concomitant]
     Indication: MULTIPLE ALLERGIES
     Route: 048
     Dates: start: 20090101

REACTIONS (1)
  - ASTHMA [None]
